FAERS Safety Report 8271402-0 (Version None)
Quarter: 2012Q2

REPORT INFORMATION
  Report Type: 
  Country: None (occurrence: None)
  Receive Date: 20120410
  Receipt Date: 20120402
  Transmission Date: 20120825
  Serious: Yes (Hospitalization, Other)
  Sender: FDA-Public Use
  Company Number: PHHY2012BR029160

PATIENT
  Age: 59 Year
  Sex: Female

DRUGS (1)
  1. EXFORGE HCT [Suspect]
     Indication: HYPERTENSION
     Dosage: 1 TABLET (160/10/12.5MG) PER DAY
     Dates: start: 20110917

REACTIONS (2)
  - ASTHMA [None]
  - RESPIRATORY DISORDER [None]
